FAERS Safety Report 21020673 (Version 1)
Quarter: 2022Q2

REPORT INFORMATION
  Report Type: Report from Study
  Country: IL (occurrence: None)
  Receive Date: 20220629
  Receipt Date: 20220629
  Transmission Date: 20220720
  Serious: Yes (Hospitalization)
  Sender: FDA-Public Use
  Company Number: IL-Merck Healthcare KGaA-9331399

PATIENT
  Age: 25 Year
  Sex: Male
  Weight: 83 kg

DRUGS (1)
  1. MAVENCLAD [Suspect]
     Active Substance: CLADRIBINE
     Indication: Multiple sclerosis
     Dates: start: 20210516

REACTIONS (1)
  - Pilonidal disease [Not Recovered/Not Resolved]

NARRATIVE: CASE EVENT DATE: 20220619
